FAERS Safety Report 13152491 (Version 2)
Quarter: 2020Q4

REPORT INFORMATION
  Report Type: Spontaneous
  Country: CA (occurrence: CA)
  Receive Date: 20170125
  Receipt Date: 20201027
  Transmission Date: 20210113
  Serious: Yes (Hospitalization, Disabling)
  Sender: FDA-Public Use
  Company Number: CA-009507513-1701CAN011356

PATIENT
  Sex: Female
  Weight: 84.82 kg

DRUGS (2)
  1. ZANTAC [Concomitant]
     Active Substance: RANITIDINE HYDROCHLORIDE
     Dosage: UNK
  2. NUVARING [Suspect]
     Active Substance: ETHINYL ESTRADIOL\ETONOGESTREL
     Indication: CONTRACEPTION
     Dosage: 1 RING (1 DF, QM/ 1 DOSAGE FORM EVERY 1 MONTHS)
     Route: 067
     Dates: start: 20160412

REACTIONS (2)
  - Hemiparesis [Recovering/Resolving]
  - Cerebrovascular accident [Recovering/Resolving]
